FAERS Safety Report 20038814 (Version 3)
Quarter: 2021Q4

REPORT INFORMATION
  Report Type: Spontaneous
  Country: US (occurrence: US)
  Receive Date: 20211105
  Receipt Date: 20211221
  Transmission Date: 20220303
  Serious: Yes (Other)
  Sender: FDA-Public Use
  Company Number: US-BAYER-2021A244736

PATIENT
  Age: 40 Year
  Sex: Male

DRUGS (2)
  1. LOTRIMIN AF ANTIFUNGAL [Suspect]
     Active Substance: MICONAZOLE NITRATE
     Indication: Tinea cruris
     Dosage: UNK
     Dates: start: 2007, end: 202109
  2. LOTRIMIN AF ANTIFUNGAL [Suspect]
     Active Substance: MICONAZOLE NITRATE
     Indication: Tinea cruris
     Dosage: UNK
     Dates: end: 202109

REACTIONS (4)
  - Hydrocele [Recovering/Resolving]
  - Testicular cyst [Recovering/Resolving]
  - Testicular pain [Recovering/Resolving]
  - Recalled product administered [None]

NARRATIVE: CASE EVENT DATE: 20210801
